FAERS Safety Report 17556323 (Version 1)
Quarter: 2020Q1

REPORT INFORMATION
  Report Type: Spontaneous
  Country: US (occurrence: US)
  Receive Date: 20200318
  Receipt Date: 20200318
  Transmission Date: 20200409
  Serious: Yes (Other)
  Sender: FDA-Public Use
  Company Number: None

PATIENT
  Age: 18 Year
  Sex: Female
  Weight: 51.3 kg

DRUGS (4)
  1. OCELLA [Suspect]
     Active Substance: DROSPIRENONE\ETHINYL ESTRADIOL
     Indication: POLYCYSTIC OVARIES
  2. GIANVI [Suspect]
     Active Substance: DROSPIRENONE\ETHINYL ESTRADIOL
  3. APRI [Suspect]
     Active Substance: DESOGESTREL\ETHINYL ESTRADIOL
  4. JUNEL FE 1/20 [Suspect]
     Active Substance: ETHINYL ESTRADIOL\NORETHINDRONE ACETATE

REACTIONS (8)
  - Acne [None]
  - Alopecia [None]
  - Product substitution issue [None]
  - Muscle spasms [None]
  - Hirsutism [None]
  - Pelvic pain [None]
  - Hypertrichosis [None]
  - Metrorrhagia [None]

NARRATIVE: CASE EVENT DATE: 20191112
